FAERS Safety Report 10094494 (Version 1)
Quarter: 2014Q2

REPORT INFORMATION
  Report Type: Spontaneous
  Country: US (occurrence: None)
  Receive Date: 20140421
  Receipt Date: 20140421
  Transmission Date: 20141212
  Serious: Yes (Other)
  Sender: FDA-Public Use
  Company Number: None

PATIENT
  Age: 49 Year
  Sex: Female
  Weight: 54.43 kg

DRUGS (1)
  1. OXYCODONE/APAP [Suspect]
     Indication: SURGERY
     Dosage: 1 PILL FOUR TIMES DAILY TAKEN BY MOUTH
     Route: 048

REACTIONS (7)
  - Product taste abnormal [None]
  - Dysgeusia [None]
  - Vomiting [None]
  - Dizziness [None]
  - Somnolence [None]
  - Product quality issue [None]
  - Product substitution issue [None]
